FAERS Safety Report 7203082-7 (Version None)
Quarter: 2010Q4

REPORT INFORMATION
  Report Type: 
  Country: None (occurrence: None)
  Receive Date: 20101229
  Receipt Date: 20101217
  Transmission Date: 20110411
  Serious: Yes (Hospitalization)
  Sender: FDA-Public Use
  Company Number: AU-GENENTECH-311531

PATIENT
  Sex: Female

DRUGS (1)
  1. LUCENTIS [Suspect]
     Indication: MACULAR DEGENERATION
     Dosage: .005 ML, UNK
     Route: 031
     Dates: start: 20100701

REACTIONS (3)
  - ARTHRALGIA [None]
  - ARTHRITIS [None]
  - METAMORPHOPSIA [None]
